FAERS Safety Report 9900097 (Version 2)
Quarter: 2014Q1

REPORT INFORMATION
  Report Type: Report from Study
  Country: CA (occurrence: CA)
  Receive Date: 20140214
  Receipt Date: 20140314
  Transmission Date: 20141002
  Serious: Yes (Hospitalization, Other)
  Sender: FDA-Public Use
  Company Number: CA-ABBVIE-14P-028-1201527-00

PATIENT
  Age: 78 Year
  Sex: Female
  Weight: 44.49 kg

DRUGS (12)
  1. HUMIRA [Suspect]
     Indication: RHEUMATOID ARTHRITIS
     Route: 058
     Dates: start: 20121218
  2. SIMVASTATIN [Concomitant]
     Indication: BLOOD CHOLESTEROL
     Dosage: AT BEDTIME
     Route: 048
  3. NORTRIPTYLINE [Concomitant]
     Indication: DEPRESSION
     Dosage: AT BEDTIME
     Route: 048
  4. NORTRIPTYLINE [Concomitant]
     Indication: INSOMNIA
  5. ZOPICLONE [Concomitant]
     Indication: INSOMNIA
     Dosage: AT BEDTIME
     Route: 048
  6. METOPROLOL, BETA BLOCKER [Concomitant]
     Indication: PRODUCT USED FOR UNKNOWN INDICATION
     Route: 048
  7. RAMIPRIL [Concomitant]
     Indication: BLOOD PRESSURE
     Route: 048
  8. NORVASC [Concomitant]
     Indication: HYPERTENSION
     Route: 048
  9. TECTA [Concomitant]
     Indication: GASTRIC DISORDER
     Route: 048
  10. SENOKOT [Concomitant]
     Indication: LAXATIVE SUPPORTIVE CARE
     Route: 048
  11. RESOTRAN [Concomitant]
     Indication: MUSCLE RELAXANT THERAPY
     Dosage: AT BEDTIME
     Route: 048
  12. SULFASALAZINE [Concomitant]
     Indication: PRODUCT USED FOR UNKNOWN INDICATION
     Dates: end: 201401

REACTIONS (17)
  - Visual acuity reduced [Recovered/Resolved]
  - Vision blurred [Recovered/Resolved]
  - Syncope [Recovering/Resolving]
  - Inappropriate schedule of drug administration [Recovered/Resolved]
  - Feeling abnormal [Recovered/Resolved]
  - Asthenia [Recovered/Resolved]
  - Gait disturbance [Recovered/Resolved]
  - Abdominal discomfort [Not Recovered/Not Resolved]
  - Headache [Recovered/Resolved]
  - Left ventricular hypertrophy [Not Recovered/Not Resolved]
  - Electrocardiogram QRS complex prolonged [Not Recovered/Not Resolved]
  - Electrocardiogram repolarisation abnormality [Not Recovered/Not Resolved]
  - Fall [Recovered/Resolved]
  - Fatigue [Unknown]
  - Dizziness [Recovered/Resolved]
  - Feeling abnormal [Recovered/Resolved]
  - Nervous system disorder [Not Recovered/Not Resolved]
